FAERS Safety Report 19963456 (Version 1)
Quarter: 2021Q4

REPORT INFORMATION
  Report Type: Spontaneous
  Country: US (occurrence: US)
  Receive Date: 20211014
  Receipt Date: 20211014
  Transmission Date: 20220303
  Serious: No
  Sender: FDA-Public Use
  Company Number: None

PATIENT
  Sex: Male

DRUGS (1)
  1. VANCOMYCIN HYDROCHLORIDE [Suspect]
     Active Substance: VANCOMYCIN HYDROCHLORIDE
     Indication: Bacteraemia
     Dosage: ?          OTHER FREQUENCY:EVERY 12 WEEKS;
     Route: 042
     Dates: start: 20210918

REACTIONS (3)
  - Chest discomfort [None]
  - Blood pressure increased [None]
  - Infusion related reaction [None]
